FAERS Safety Report 15807406 (Version 3)
Quarter: 2019Q2

REPORT INFORMATION
  Report Type: Spontaneous
  Country: US (occurrence: US)
  Receive Date: 20190110
  Receipt Date: 20190415
  Transmission Date: 20190711
  Serious: No
  Sender: FDA-Public Use
  Company Number: US-PFIZER INC-2019012402

PATIENT
  Age: 61 Year
  Sex: Female

DRUGS (3)
  1. XELJANZ XR [Suspect]
     Active Substance: TOFACITINIB CITRATE
     Indication: RHEUMATOID ARTHRITIS
     Dosage: 11 MG, UNK
     Dates: start: 201812
  2. XELJANZ XR [Suspect]
     Active Substance: TOFACITINIB CITRATE
     Dosage: 11 MG, UNK
     Dates: start: 2019
  3. XELJANZ XR [Suspect]
     Active Substance: TOFACITINIB CITRATE
     Dosage: 11 MG, UNK
     Dates: start: 201901, end: 2019

REACTIONS (7)
  - Urinary tract infection [Unknown]
  - Abdominal distension [Unknown]
  - Fluid retention [Unknown]
  - Abdominal discomfort [Unknown]
  - Weight increased [Unknown]
  - Pollakiuria [Unknown]
  - Influenza like illness [Unknown]

NARRATIVE: CASE EVENT DATE: 20190102
